FAERS Safety Report 8786619 (Version 1)
Quarter: 2012Q4

REPORT INFORMATION
  Report Type: 
  Country: US (occurrence: US)
  Receive Date: 20120914
  Receipt Date: 20120914
  Transmission Date: 20130627
  Serious: Yes (Other)
  Sender: FDA-Public Use
  Company Number: PHHY2012US078712

PATIENT
  Age: 63 Year
  Sex: Male

DRUGS (7)
  1. CISPLATIN [Suspect]
     Indication: MELANOMA RECURRENT
     Dosage: 25 mg/m2
  2. CARBOPLATIN [Suspect]
     Indication: MELANOMA RECURRENT
     Dates: start: 201104
  3. TEMOZOLOMIDE [Concomitant]
     Dosage: 75 mg/m2
  4. TEMOZOLOMIDE [Concomitant]
     Dosage: 150 mg/m2
  5. IPILIMUMAB [Concomitant]
     Dosage: 3 mg/kg
  6. VINBLASTINE [Concomitant]
     Dosage: 1.2 mg/m2
     Route: 042
  7. PACLITAXEL [Concomitant]
     Dosage: 175 mg/m2

REACTIONS (4)
  - Angina unstable [Recovered/Resolved]
  - Chest pain [Recovered/Resolved]
  - Blood pressure increased [Unknown]
  - Heart rate increased [Unknown]
